FAERS Safety Report 6018167-0 (Version None)
Quarter: 2008Q4

REPORT INFORMATION
  Report Type: 
  Country: None (occurrence: None)
  Receive Date: 20081223
  Receipt Date: 20081211
  Transmission Date: 20090506
  Serious: Yes (Other)
  Sender: FDA-Public Use
  Company Number: US-PFIZER INC-2008097482

PATIENT
  Sex: Male
  Weight: 90.909 kg

DRUGS (4)
  1. XALATAN [Suspect]
     Indication: GLAUCOMA
     Dosage: 1 GTT, 1X/DAY
     Route: 047
     Dates: start: 19961001
  2. XALATAN [Suspect]
     Dates: start: 19961001
  3. PROZAC [Concomitant]
     Dosage: UNK
  4. LIPITOR [Concomitant]
     Dosage: 40 MG, 1X/DAY

REACTIONS (3)
  - BLOOD CHOLESTEROL INCREASED [None]
  - INTRAOCULAR PRESSURE INCREASED [None]
  - PRODUCT QUALITY ISSUE [None]
